FAERS Safety Report 7287873-2 (Version None)
Quarter: 2011Q1

REPORT INFORMATION
  Report Type: 
  Country: None (occurrence: None)
  Receive Date: 20110211
  Receipt Date: 20101025
  Transmission Date: 20110831
  Serious: No
  Sender: FDA-Public Use
  Company Number: A0888669A

PATIENT
  Age: 54 Year
  Sex: Female

DRUGS (4)
  1. VERAPAMIL [Concomitant]
  2. TREXIMET [Suspect]
     Indication: MIGRAINE
     Dosage: 1TAB PER DAY
     Route: 048
     Dates: start: 20100201, end: 20100201
  3. TOPAMAX [Concomitant]
  4. MULTIVITAMIN [Concomitant]

REACTIONS (4)
  - NAUSEA [None]
  - CHILLS [None]
  - FEELING ABNORMAL [None]
  - MALAISE [None]
